FAERS Safety Report 10537516 (Version 1)
Quarter: 2014Q4

REPORT INFORMATION
  Report Type: Spontaneous
  Country: US (occurrence: None)
  Receive Date: 20141022
  Receipt Date: 20141022
  Transmission Date: 20150529
  Serious: Yes (Life-Threatening, Hospitalization, Disabling)
  Sender: FDA-Public Use
  Company Number: None

PATIENT
  Age: 59 Year
  Sex: Female
  Weight: 83.92 kg

DRUGS (1)
  1. ZOLPIDEM [Suspect]
     Active Substance: ZOLPIDEM\ZOLPIDEM TARTRATE
     Indication: INSOMNIA
     Route: 048

REACTIONS (7)
  - Screaming [None]
  - Sleep-related eating disorder [None]
  - Burns second degree [None]
  - Somnambulism [None]
  - Abnormal sleep-related event [None]
  - Skin graft [None]
  - Burns third degree [None]

NARRATIVE: CASE EVENT DATE: 20141009
